FAERS Safety Report 18028286 (Version 4)
Quarter: 2020Q3

REPORT INFORMATION
  Report Type: Spontaneous
  Country: GB (occurrence: GB)
  Receive Date: 20200715
  Receipt Date: 20200827
  Transmission Date: 20201103
  Serious: Yes (Disabling)
  Sender: FDA-Public Use
  Company Number: GB-ASCEND THERAPEUTICS US, LLC-2087405

PATIENT
  Age: 49 Year
  Sex: Female

DRUGS (6)
  1. ESTROGEL [Suspect]
     Active Substance: ESTRADIOL
  2. ESTROGEL [Suspect]
     Active Substance: ESTRADIOL
     Indication: HORMONE REPLACEMENT THERAPY
     Route: 062
     Dates: start: 20200527
  3. OESTRODOSE (ESTRADIOL) (0.06%, GEL)?INDICATION FOR USE: HRT, MENOPAUSE [Suspect]
     Active Substance: ESTRADIOL
     Route: 062
     Dates: end: 20200626
  4. OESTRODOSE (ESTRADIOL) (0.06%, GEL)?INDICATION FOR USE: HRT, MENOPAUSE [Suspect]
     Active Substance: ESTRADIOL
     Route: 062
     Dates: start: 20200527, end: 20200626
  5. OESTRODOSE (ESTRADIOL) (0.06%, GEL)?INDICATION FOR USE: HRT, MENOPAUSE [Suspect]
     Active Substance: ESTRADIOL
     Route: 062
     Dates: start: 20200527
  6. OESTROGEL (OESTROGEL) (ESTRADIOL) (GEL), UNKNOWN?INDICATION FOR USE: M [Suspect]
     Active Substance: ESTRADIOL
     Route: 065

REACTIONS (19)
  - Lethargy [Not Recovered/Not Resolved]
  - Skin discomfort [Unknown]
  - Anxiety [Not Recovered/Not Resolved]
  - Intentional product use issue [Unknown]
  - Anger [Not Recovered/Not Resolved]
  - Dizziness [Unknown]
  - Menopausal symptoms [Unknown]
  - Irritability [Unknown]
  - Amnesia [Unknown]
  - Tinnitus [Unknown]
  - Crying [Not Recovered/Not Resolved]
  - Drug ineffective [Unknown]
  - Product substitution issue [Unknown]
  - Product prescribing error [Unknown]
  - Joint swelling [Not Recovered/Not Resolved]
  - Headache [Not Recovered/Not Resolved]
  - Menopause [Not Recovered/Not Resolved]
  - Breast pain [Not Recovered/Not Resolved]
  - Feeling abnormal [Unknown]

NARRATIVE: CASE EVENT DATE: 20200527
